FAERS Safety Report 7248657-4 (Version None)
Quarter: 2011Q1

REPORT INFORMATION
  Report Type: 
  Country: None (occurrence: None)
  Receive Date: 20110128
  Receipt Date: 20110119
  Transmission Date: 20110831
  Serious: Yes (Death, Hospitalization)
  Sender: FDA-Public Use
  Company Number: US-BIOGENIDEC-2010BI040334

PATIENT
  Age: 60 Year
  Sex: Female

DRUGS (8)
  1. LOPRESSOR [Concomitant]
     Route: 048
     Dates: end: 20100714
  2. DURAGESIC-50 [Concomitant]
     Dosage: DOSE UNIT:75
     Route: 062
     Dates: end: 20100714
  3. TYSABRI [Suspect]
     Indication: MULTIPLE SCLEROSIS
     Route: 042
     Dates: start: 20080516, end: 20090116
  4. BACLOFEN [Concomitant]
     Dates: end: 20100714
  5. FLORASTOR [Concomitant]
     Dates: end: 20100714
  6. HEPARIN [Concomitant]
     Route: 058
     Dates: end: 20100714
  7. PREVACID [Concomitant]
     Dates: end: 20100714
  8. REGLAN [Concomitant]
     Route: 048
     Dates: end: 20100714

REACTIONS (2)
  - INFECTION [None]
  - ACUTE RESPIRATORY FAILURE [None]
